FAERS Safety Report 9302300 (Version 1)
Quarter: 2013Q2

REPORT INFORMATION
  Report Type: Spontaneous
  Country: US (occurrence: US)
  Receive Date: 20130522
  Receipt Date: 20130522
  Transmission Date: 20140414
  Serious: Yes (Hospitalization)
  Sender: FDA-Public Use
  Company Number: US-009507513-1305USA012055

PATIENT
  Age: 20 Year
  Sex: Female

DRUGS (3)
  1. SAPHRIS [Suspect]
     Indication: BIPOLAR I DISORDER
     Dosage: 5 MG, BID
     Route: 060
  2. ZYPREXA [Suspect]
     Indication: MANIA
     Dosage: UNK
  3. ATIVAN [Suspect]
     Indication: MANIA
     Dosage: UNK

REACTIONS (4)
  - Mania [Unknown]
  - Sedation [Unknown]
  - Malaise [Unknown]
  - Drug ineffective [Unknown]
